FAERS Safety Report 5361540-4 (Version None)
Quarter: 2007Q2

REPORT INFORMATION
  Report Type: 
  Country: None (occurrence: None)
  Receive Date: 20070619
  Receipt Date: 20070608
  Transmission Date: 20071010
  Serious: Yes (Other)
  Sender: FDA-Public Use
  Company Number: PHBS2007BR09786

PATIENT
  Age: 67 Year
  Sex: Male

DRUGS (5)
  1. GLEEVEC [Suspect]
     Indication: CHRONIC MYELOID LEUKAEMIA
     Dosage: 400 MG/D
     Route: 048
     Dates: start: 20061208
  2. GLEEVEC [Suspect]
     Dosage: 600 MG/D
     Route: 048
     Dates: start: 20061024, end: 20061207
  3. TIMOLOL MALEATE [Concomitant]
     Indication: INTRAOCULAR PRESSURE INCREASED
     Route: 065
  4. CLORANA [Concomitant]
     Indication: HYPERTENSION
     Dosage: 50 MG/D
     Route: 048
     Dates: start: 20051114, end: 20061101
  5. CLORANA [Concomitant]
     Dosage: 50 MG/D
     Route: 048
     Dates: start: 20061205

REACTIONS (4)
  - AGGRESSION [None]
  - DEMENTIA [None]
  - HAEMATOTOXICITY [None]
  - PERSECUTORY DELUSION [None]
